FAERS Safety Report 10103210 (Version 1)
Quarter: 2014Q2

REPORT INFORMATION
  Report Type: Spontaneous
  Country: US (occurrence: US)
  Receive Date: 20140424
  Receipt Date: 20140424
  Transmission Date: 20141212
  Serious: No
  Sender: FDA-Public Use
  Company Number: US-BRISTOL-MYERS SQUIBB COMPANY-20187852

PATIENT
  Age: 75 Year
  Sex: Male
  Weight: 105.67 kg

DRUGS (8)
  1. ELIQUIS [Suspect]
  2. METOPROLOL [Concomitant]
  3. IRBESARTAN [Concomitant]
  4. CRESTOR [Concomitant]
  5. NEXIUM [Concomitant]
  6. CARAFATE [Concomitant]
  7. SUCRALFATE [Concomitant]
  8. MULTIVITAMIN [Concomitant]

REACTIONS (1)
  - Blood pressure increased [Unknown]
